FAERS Safety Report 20176954 (Version 7)
Quarter: 2022Q3

REPORT INFORMATION
  Report Type: Report from Study
  Country: US (occurrence: US)
  Receive Date: 20211213
  Receipt Date: 20220729
  Transmission Date: 20221027
  Serious: Yes (Death, Life-Threatening, Hospitalization)
  Sender: FDA-Public Use
  Company Number: US-NOVARTISPH-NVSC2021US281791

PATIENT
  Age: 61 Year
  Sex: Female
  Weight: 82.1 kg

DRUGS (15)
  1. KYMRIAH [Suspect]
     Active Substance: TISAGENLECLEUCEL
     Indication: Non-Hodgkin^s lymphoma
     Dosage: 4.0X10E8 CELLS
     Route: 042
     Dates: start: 20210323
  2. RITUXIMAB [Suspect]
     Active Substance: RITUXIMAB
     Indication: Non-Hodgkin^s lymphoma
     Dosage: 700 MG ONCE
     Route: 041
     Dates: start: 20201102
  3. GEMCITABINE [Suspect]
     Active Substance: GEMCITABINE
     Indication: Non-Hodgkin^s lymphoma
     Dosage: 1824 MG ONCE
     Route: 065
     Dates: start: 20201102
  4. CISPLATIN [Suspect]
     Active Substance: CISPLATIN
     Indication: Non-Hodgkin^s lymphoma
     Dosage: 138 MG ONCE
     Route: 041
     Dates: start: 20201102
  5. OXALIPLATIN [Suspect]
     Active Substance: OXALIPLATIN
     Indication: Non-Hodgkin^s lymphoma
     Dosage: 180 MG ONCE
     Route: 065
     Dates: start: 20201221
  6. DEXAMETHASONE SODIUM PHOSPHATE [Suspect]
     Active Substance: DEXAMETHASONE SODIUM PHOSPHATE
     Indication: Non-Hodgkin^s lymphoma
     Dosage: 160 MG ONCE
     Route: 048
     Dates: start: 20201102
  7. TOCILIZUMAB [Suspect]
     Active Substance: TOCILIZUMAB
     Indication: Non-Hodgkin^s lymphoma
     Dosage: 8 MG/KG
     Route: 042
     Dates: start: 20210325
  8. CYCLOPHOSPHAMIDE [Concomitant]
     Active Substance: CYCLOPHOSPHAMIDE
     Indication: Chemotherapy
     Dosage: 460 MG, ONCE
     Route: 065
     Dates: start: 20210318, end: 20210318
  9. CYCLOPHOSPHAMIDE [Concomitant]
     Active Substance: CYCLOPHOSPHAMIDE
     Dosage: 460 MG ONCE
     Route: 065
     Dates: start: 20210319, end: 20210319
  10. CYCLOPHOSPHAMIDE [Concomitant]
     Active Substance: CYCLOPHOSPHAMIDE
     Dosage: 460 MG ONCE
     Route: 065
     Dates: start: 20210320, end: 20210320
  11. FLUDARABINE [Concomitant]
     Active Substance: FLUDARABINE PHOSPHATE
     Indication: Chemotherapy
     Dosage: 46 MG, ONCE
     Route: 065
     Dates: start: 20210318, end: 20210318
  12. FLUDARABINE [Concomitant]
     Active Substance: FLUDARABINE PHOSPHATE
     Dosage: 46 MG ONCE
     Route: 065
     Dates: start: 20210319, end: 20210319
  13. FLUDARABINE [Concomitant]
     Active Substance: FLUDARABINE PHOSPHATE
     Dosage: 46 MG ONCE
     Route: 065
     Dates: start: 20210320, end: 20210320
  14. DEXAMETHASONE [Concomitant]
     Active Substance: DEXAMETHASONE
     Indication: Prophylaxis
     Dosage: UNK
     Route: 065
     Dates: start: 20201102, end: 20211221
  15. CARBOXYMETHYLCELLULOSE SODIUM [Concomitant]
     Active Substance: CARBOXYMETHYLCELLULOSE SODIUM
     Indication: Bell^s palsy
     Dosage: UNK
     Route: 065
     Dates: start: 20210701

REACTIONS (1)
  - COVID-19 pneumonia [Fatal]

NARRATIVE: CASE EVENT DATE: 20211207
